FAERS Safety Report 21652351 (Version 3)
Quarter: 2023Q1

REPORT INFORMATION
  Report Type: Report from Study
  Country: US (occurrence: US)
  Receive Date: 20221128
  Receipt Date: 20230209
  Transmission Date: 20230417
  Serious: Yes (Hospitalization, Other)
  Sender: FDA-Public Use
  Company Number: US-TAKEDA-2022TUS088087

PATIENT
  Sex: Female

DRUGS (2)
  1. MARIBAVIR [Suspect]
     Active Substance: MARIBAVIR
     Indication: Lung transplant
     Dosage: 2 DOSAGE FORM, BID
     Route: 048
     Dates: start: 20221103
  2. MARIBAVIR [Suspect]
     Active Substance: MARIBAVIR
     Dosage: 2 DOSAGE FORM, BID
     Route: 048
     Dates: start: 20221103

REACTIONS (5)
  - Pyrexia [Unknown]
  - Renal failure [Unknown]
  - Nausea [Unknown]
  - Vomiting [Unknown]
  - Product use issue [Unknown]
